FAERS Safety Report 22211324 (Version 4)
Quarter: 2023Q2

REPORT INFORMATION
  Report Type: Spontaneous
  Country: JP (occurrence: JP)
  Receive Date: 20230414
  Receipt Date: 20230621
  Transmission Date: 20230722
  Serious: Yes (Hospitalization, Other)
  Sender: FDA-Public Use
  Company Number: JP-KYOWAKIRIN-2023AKK004977

PATIENT
  Age: 55 Year
  Sex: Female

DRUGS (3)
  1. DARBEPOETIN ALFA [Suspect]
     Active Substance: DARBEPOETIN ALFA
     Indication: Nephrogenic anaemia
     Dosage: 40 MICROGRAM
     Route: 065
     Dates: start: 20230328, end: 202304
  2. DARBEPOETIN ALFA [Suspect]
     Active Substance: DARBEPOETIN ALFA
     Dosage: 30 UNK
     Route: 065
     Dates: start: 202302
  3. Fesin [Concomitant]
     Indication: Product used for unknown indication
     Dosage: UNK
     Route: 042
     Dates: start: 20230328

REACTIONS (1)
  - Aplasia pure red cell [Recovering/Resolving]
